FAERS Safety Report 8763994 (Version 3)
Quarter: 2013Q1

REPORT INFORMATION
  Report Type: Report from Study
  Country: IN (occurrence: IN)
  Receive Date: 20120831
  Receipt Date: 20130301
  Transmission Date: 20140127
  Serious: Yes (Hospitalization)
  Sender: FDA-Public Use
  Company Number: IN-PFIZER INC-2012209015

PATIENT
  Age: 77 Year
  Sex: Female
  Weight: 66 kg

DRUGS (11)
  1. IRINOTECAN HCL [Suspect]
     Indication: COLORECTAL CANCER METASTATIC
     Dosage: 180 MG/M2, ON DAY ONE EVERY 14 DAYS
     Route: 042
     Dates: start: 20120413
  2. 5-FU [Suspect]
     Indication: COLORECTAL CANCER METASTATIC
     Dosage: 400 MG/M2 ON DAY ONE
     Route: 040
     Dates: start: 20120413
  3. 5-FU [Suspect]
     Dosage: 2400 MG/M2, ON DAYS ONE AND TWO EVERY 14 DAYS
     Route: 041
     Dates: start: 20120413
  4. FOLINIC ACID [Suspect]
     Indication: COLORECTAL CANCER METASTATIC
     Dosage: 400 MG/M2, ON DAY ONE EVERY 14 DAYS
     Route: 042
     Dates: start: 20120413
  5. BLINDED THERAPY [Suspect]
     Indication: COLORECTAL CANCER METASTATIC
     Dosage: EVERY 14 DAYS
     Route: 042
     Dates: start: 20120413
  6. RANITIDINE [Concomitant]
     Indication: PROPHYLAXIS
     Dosage: UNK
     Dates: start: 20120810, end: 20120815
  7. AMLODIPINE W/ATENOLOL [Concomitant]
     Indication: HYPERTENSION
     Dosage: UNK
     Dates: start: 20000101
  8. DOMPERIDONE W/PANTOPRAZOLE [Concomitant]
     Indication: PROPHYLAXIS
  9. ONDANSETRON [Concomitant]
     Indication: PROPHYLAXIS
     Dosage: UNK
     Dates: start: 20120416
  10. GLIMEPIRIDE [Concomitant]
     Indication: DIABETES MELLITUS
     Dosage: UNK
     Dates: start: 20000101
  11. VITAMIN B COMPLEX [Concomitant]
     Dosage: UNK
     Dates: start: 20120327

REACTIONS (2)
  - Oral candidiasis [Recovered/Resolved]
  - Mucosal inflammation [Recovered/Resolved]
